FAERS Safety Report 8022122-9 (Version None)
Quarter: 2012Q1

REPORT INFORMATION
  Report Type: 
  Country: None (occurrence: None)
  Receive Date: 20120104
  Receipt Date: 20111229
  Transmission Date: 20120608
  Serious: No
  Sender: FDA-Public Use
  Company Number: US-PFIZER INC-2011316522

PATIENT
  Sex: Female
  Weight: 80.726 kg

DRUGS (6)
  1. DEXLANSOPRAZOLE [Suspect]
     Indication: GASTROOESOPHAGEAL REFLUX DISEASE
     Dosage: 60 MG, 2X/DAY
     Route: 048
     Dates: start: 20100101, end: 20111101
  2. LISINOPRIL [Suspect]
     Indication: BLOOD PRESSURE ABNORMAL
     Dosage: 20 MG, UNK
     Dates: start: 20110101
  3. CYMBALTA [Concomitant]
     Dosage: 60 MG, UNK
  4. REQUIP [Concomitant]
     Indication: RESTLESS LEGS SYNDROME
     Dosage: UNK
  5. DETROL [Suspect]
     Indication: URINARY INCONTINENCE
     Dosage: 4 MG, 1X/DAY
     Route: 048
     Dates: start: 20080101, end: 20110801
  6. LIPITOR [Concomitant]
     Dosage: 40 MG, UNK

REACTIONS (2)
  - OVERWEIGHT [None]
  - ABDOMINAL DISCOMFORT [None]
